FAERS Safety Report 24167503 (Version 1)
Quarter: 2024Q3

REPORT INFORMATION
  Report Type: Spontaneous
  Country: US (occurrence: US)
  Receive Date: 20240802
  Receipt Date: 20240802
  Transmission Date: 20241017
  Serious: No
  Sender: AMGEN
  Company Number: US-AMGEN-USASP2024145419

PATIENT
  Sex: Female

DRUGS (5)
  1. KRYSTEXXA [Suspect]
     Active Substance: PEGLOTICASE
     Indication: Product used for unknown indication
     Dosage: UNK
     Route: 042
  2. KRYSTEXXA [Suspect]
     Active Substance: PEGLOTICASE
     Dosage: UNK, SIXTH INFUSION
     Route: 042
     Dates: start: 2024
  3. PREDNISONE [Suspect]
     Active Substance: PREDNISONE
     Indication: Product used for unknown indication
     Dosage: 5 MILLIGRAM, QD (DAILY)
     Route: 065
  4. BENADRYL [Concomitant]
     Active Substance: DIPHENHYDRAMINE HYDROCHLORIDE
     Indication: Premedication
  5. TYLENOL [Concomitant]
     Active Substance: ACETAMINOPHEN
     Indication: Premedication

REACTIONS (7)
  - Blood uric acid decreased [Unknown]
  - Condition aggravated [Unknown]
  - Contusion [Unknown]
  - Pain [Unknown]
  - Pain in extremity [Unknown]
  - Swelling [Unknown]
  - Malaise [Unknown]

NARRATIVE: CASE EVENT DATE: 20240101
